FAERS Safety Report 18507621 (Version 13)
Quarter: 2025Q3

REPORT INFORMATION
  Report Type: Report from Study
  Country: US (occurrence: US)
  Receive Date: 20201116
  Receipt Date: 20250904
  Transmission Date: 20251021
  Serious: Yes (Hospitalization)
  Sender: TAKEDA
  Company Number: US-TAKEDA-2020TUS046595

PATIENT
  Sex: Female
  Weight: 61 kg

DRUGS (32)
  1. HUMAN IMMUNOGLOBULIN G [Suspect]
     Active Substance: HUMAN IMMUNOGLOBULIN G
     Indication: Immunodeficiency common variable
     Dosage: 30 GRAM, Q4WEEKS
     Dates: start: 20171207
  2. HUMAN IMMUNOGLOBULIN G [Suspect]
     Active Substance: HUMAN IMMUNOGLOBULIN G
     Indication: Rhinitis allergic
     Dosage: 30 GRAM, Q4WEEKS
  3. HYQVIA [Suspect]
     Active Substance: HUMAN IMMUNOGLOBULIN G\HYALURONIDASE (HUMAN RECOMBINANT)
     Indication: Immunodeficiency common variable
     Dosage: 30 GRAM, Q4WEEKS
  4. LOSARTAN POTASSIUM [Concomitant]
     Active Substance: LOSARTAN POTASSIUM
  5. FUROSEMIDE [Concomitant]
     Active Substance: FUROSEMIDE
  6. ACETAMINOPHEN [Concomitant]
     Active Substance: ACETAMINOPHEN
  7. DIPHENHYDRAMINE [Concomitant]
     Active Substance: DIPHENHYDRAMINE
  8. SODIUM CHLORIDE [Concomitant]
     Active Substance: SODIUM CHLORIDE
  9. Lmx [Concomitant]
  10. EPINEPHRINE [Concomitant]
     Active Substance: EPINEPHRINE
  11. CALCIUM [Concomitant]
     Active Substance: CALCIUM
  12. ALIGN [Concomitant]
     Active Substance: BIFIDOBACTERIUM LONGUM SUBSP. INFANTIS
  13. HERBALS\TURMERIC [Concomitant]
     Active Substance: HERBALS\TURMERIC
  14. ALLEGRA-D [Concomitant]
     Active Substance: FEXOFENADINE HYDROCHLORIDE\PSEUDOEPHEDRINE HYDROCHLORIDE
  15. SIMVASTATIN [Concomitant]
     Active Substance: SIMVASTATIN
  16. GABAPENTIN [Concomitant]
     Active Substance: GABAPENTIN
  17. ESCITALOPRAM OXALATE [Concomitant]
     Active Substance: ESCITALOPRAM OXALATE
  18. KLONOPIN [Concomitant]
     Active Substance: CLONAZEPAM
  19. FEMARA [Concomitant]
     Active Substance: LETROZOLE
  20. FLONASE [Concomitant]
     Active Substance: FLUTICASONE PROPIONATE
  21. AZELASTINE [Concomitant]
     Active Substance: AZELASTINE
  22. INDERAL [Concomitant]
     Active Substance: PROPRANOLOL HYDROCHLORIDE
  23. COENZYME Q10 [Concomitant]
     Active Substance: DIETARY SUPPLEMENT\UBIDECARENONE
  24. CORLANOR [Concomitant]
     Active Substance: IVABRADINE HYDROCHLORIDE
  25. METOPROLOL SUCCINATE [Concomitant]
     Active Substance: METOPROLOL SUCCINATE
  26. FLUTICASONE PROPIONATE [Concomitant]
     Active Substance: FLUTICASONE PROPIONATE
  27. AZELASTINE HYDROCHLORIDE [Concomitant]
     Active Substance: AZELASTINE HYDROCHLORIDE
  28. TYLENOL EXTRA STRENGTH [Concomitant]
     Active Substance: ACETAMINOPHEN
  29. LOSARTAN [Concomitant]
     Active Substance: LOSARTAN
  30. SODIUM CHLORIDE [Concomitant]
     Active Substance: SODIUM CHLORIDE
  31. DIPHENHYDRAMINE HYDROCHLORIDE [Concomitant]
     Active Substance: DIPHENHYDRAMINE HYDROCHLORIDE
  32. ALLEGRA ALLERGY [Concomitant]
     Active Substance: FEXOFENADINE HYDROCHLORIDE

REACTIONS (15)
  - Fall [Unknown]
  - Tachycardia [Unknown]
  - Infusion related reaction [Unknown]
  - Gastrooesophageal reflux disease [Unknown]
  - Abdominal discomfort [Unknown]
  - Headache [Unknown]
  - Dysuria [Unknown]
  - Inappropriate schedule of product administration [Unknown]
  - Urinary tract infection [Unknown]
  - Poor venous access [Unknown]
  - Incorrect drug administration rate [Unknown]
  - Product dose omission issue [Unknown]
  - Weight decreased [Unknown]
  - Back pain [Unknown]
  - Nausea [Recovering/Resolving]
